FAERS Safety Report 15879329 (Version 1)
Quarter: 2019Q1

REPORT INFORMATION
  Report Type: Spontaneous
  Country: US (occurrence: US)
  Receive Date: 20190103
  Receipt Date: 20190103
  Transmission Date: 20190417
  Serious: No
  Sender: FDA-Public Use
  Company Number: None

PATIENT
  Age: 55 Year
  Sex: Female

DRUGS (1)
  1. CAPECITABINE 500MG ROXANE [Suspect]
     Active Substance: CAPECITABINE
     Indication: BREAST CANCER
     Dosage: ?          OTHER FREQUENCY:BID X 14D AND 7D O;?
     Route: 048
     Dates: start: 20180524

REACTIONS (3)
  - Vision blurred [None]
  - Alopecia [None]
  - Oral herpes [None]

NARRATIVE: CASE EVENT DATE: 20181201
